FAERS Safety Report 9762457 (Version 1)
Quarter: 2013Q4

REPORT INFORMATION
  Report Type: Spontaneous
  Country: US (occurrence: US)
  Receive Date: 20131216
  Receipt Date: 20131216
  Transmission Date: 20140711
  Serious: No
  Sender: FDA-Public Use
  Company Number: US-BIOGENIDEC-2013BI106738

PATIENT
  Age: 35 Year
  Sex: Female

DRUGS (8)
  1. TECFIDERA [Suspect]
     Indication: PRODUCT USED FOR UNKNOWN INDICATION
     Route: 048
  2. LOESTRIN [Concomitant]
  3. CELEXA [Concomitant]
  4. IBUPROFEN [Concomitant]
  5. FISH OIL [Concomitant]
  6. PHENERGAN [Concomitant]
  7. TUMS [Concomitant]
  8. ZANTAC [Concomitant]

REACTIONS (7)
  - Heart rate increased [Unknown]
  - Abdominal pain upper [Unknown]
  - Vomiting [Unknown]
  - Diarrhoea [Unknown]
  - Nausea [Unknown]
  - Dyspepsia [Unknown]
  - Flushing [Unknown]
